FAERS Safety Report 19189750 (Version 1)
Quarter: 2021Q2

REPORT INFORMATION
  Report Type: Spontaneous
  Country: US (occurrence: US)
  Receive Date: 20210428
  Receipt Date: 20210428
  Transmission Date: 20210717
  Serious: Yes (Hospitalization)
  Sender: FDA-Public Use
  Company Number: None

PATIENT
  Age: 35 Year
  Sex: Male

DRUGS (15)
  1. METOPROL SU [Concomitant]
  2. VENTOLIN [Concomitant]
     Active Substance: ALBUTEROL SULFATE
  3. VIT D [Concomitant]
     Active Substance: VITAMIN D NOS
  4. AZELASTINE. [Concomitant]
     Active Substance: AZELASTINE HYDROCHLORIDE
  5. DRONABINOL. [Concomitant]
     Active Substance: DRONABINOL
  6. PROCHLORPER [Concomitant]
  7. BUT/APA/CAF [Concomitant]
  8. NORTRIPTYLIN [Concomitant]
     Active Substance: NORTRIPTYLINE
  9. TIZANDIDINE [Concomitant]
  10. ALPRAZOLAM. [Concomitant]
     Active Substance: ALPRAZOLAM
  11. HUMIRA [Suspect]
     Active Substance: ADALIMUMAB
     Indication: CROHN^S DISEASE
     Route: 058
     Dates: start: 20200211
  12. BUSPIRONE [Concomitant]
     Active Substance: BUSPIRONE HYDROCHLORIDE
  13. DUTASTERIDE. [Concomitant]
     Active Substance: DUTASTERIDE
  14. TAMSULOSIN [Concomitant]
     Active Substance: TAMSULOSIN
  15. TRULANCE [Concomitant]
     Active Substance: PLECANATIDE

REACTIONS (3)
  - White blood cell count increased [None]
  - Abdominal discomfort [None]
  - Condition aggravated [None]

NARRATIVE: CASE EVENT DATE: 202104
